FAERS Safety Report 21350832 (Version 1)
Quarter: 2022Q3

REPORT INFORMATION
  Report Type: Spontaneous
  Country: US (occurrence: US)
  Receive Date: 20220919
  Receipt Date: 20220919
  Transmission Date: 20221027
  Serious: Yes (Hospitalization)
  Sender: FDA-Public Use
  Company Number: US-HALEON-USCH2022GSK033731

PATIENT

DRUGS (4)
  1. ACETAMINOPHEN [Suspect]
     Active Substance: ACETAMINOPHEN
     Indication: Intentional self-injury
     Dosage: 50 TABLETS OF 500 MG
     Route: 065
  2. CIMETIDINE [Suspect]
     Active Substance: CIMETIDINE
     Indication: Intentional self-injury
     Dosage: UNK
     Route: 065
  3. IBUPROFEN [Suspect]
     Active Substance: IBUPROFEN
     Indication: Intentional self-injury
     Dosage: UNK
     Route: 065
  4. NAPROXEN [Suspect]
     Active Substance: NAPROXEN
     Indication: Intentional self-injury
     Dosage: UNK
     Route: 065

REACTIONS (4)
  - Intentional overdose [Unknown]
  - Cyanosis [Unknown]
  - Sulphaemoglobinaemia [Unknown]
  - Methaemoglobinaemia [Unknown]
